FAERS Safety Report 12798573 (Version 2)
Quarter: 2016Q4

REPORT INFORMATION
  Report Type: Spontaneous
  Country: US (occurrence: US)
  Receive Date: 20160930
  Receipt Date: 20161116
  Transmission Date: 20170207
  Serious: Yes (Other)
  Sender: FDA-Public Use
  Company Number: US-JNJFOC-20160927628

PATIENT

DRUGS (2)
  1. LEVAQUIN [Suspect]
     Active Substance: LEVOFLOXACIN
     Indication: PRODUCT USED FOR UNKNOWN INDICATION
     Route: 048
  2. LEVAQUIN [Suspect]
     Active Substance: LEVOFLOXACIN
     Indication: PRODUCT USED FOR UNKNOWN INDICATION
     Route: 048
     Dates: end: 2011

REACTIONS (6)
  - Skin disorder [Unknown]
  - Neuropathy peripheral [Unknown]
  - Musculoskeletal disorder [Unknown]
  - Cardiovascular disorder [Unknown]
  - Mental disorder [Unknown]
  - Sensory disturbance [Unknown]

NARRATIVE: CASE EVENT DATE: 2011
